FAERS Safety Report 10236294 (Version 1)
Quarter: 2014Q2

REPORT INFORMATION
  Report Type: Spontaneous
  Country: SG (occurrence: SG)
  Receive Date: 20140613
  Receipt Date: 20140613
  Transmission Date: 20141212
  Serious: Yes (Other)
  Sender: FDA-Public Use
  Company Number: SG-009507513-1406SGP007289

PATIENT
  Age: 73 Year
  Sex: Female

DRUGS (1)
  1. ALENDRONATE SODIUM [Suspect]
     Dosage: UNK
     Route: 048
     Dates: end: 200706

REACTIONS (4)
  - Femur fracture [Recovered/Resolved]
  - External fixation of fracture [Recovered/Resolved]
  - Fracture nonunion [Recovered/Resolved]
  - Surgery [Recovered/Resolved]
